FAERS Safety Report 14755556 (Version 1)
Quarter: 2018Q2

REPORT INFORMATION
  Report Type: Spontaneous
  Country: GB (occurrence: GB)
  Receive Date: 20180413
  Receipt Date: 20180413
  Transmission Date: 20180711
  Serious: Yes (Other)
  Sender: FDA-Public Use
  Company Number: GB-BRISTOL-MYERS SQUIBB COMPANY-BMS-2018-032463

PATIENT
  Sex: Male

DRUGS (4)
  1. HYDROXYUREA. [Suspect]
     Active Substance: HYDROXYUREA
     Indication: SYSTEMIC MASTOCYTOSIS
     Dosage: UNK
     Route: 065
  2. IMATINIB [Suspect]
     Active Substance: IMATINIB
     Indication: MYELOPROLIFERATIVE NEOPLASM
     Dosage: UNK
     Route: 065
  3. IMATINIB [Suspect]
     Active Substance: IMATINIB
     Indication: SYSTEMIC MASTOCYTOSIS
     Route: 065
  4. HYDROXYUREA. [Suspect]
     Active Substance: HYDROXYUREA
     Indication: MYELOPROLIFERATIVE NEOPLASM
     Route: 065

REACTIONS (10)
  - Splenomegaly [Unknown]
  - Asthenia [Unknown]
  - Malignant neoplasm progression [Unknown]
  - Systemic mastocytosis [Unknown]
  - Disease progression [Unknown]
  - Product use in unapproved indication [Unknown]
  - Night sweats [Unknown]
  - Therapy non-responder [Unknown]
  - Blast cell count increased [Unknown]
  - Abdominal discomfort [Unknown]

NARRATIVE: CASE EVENT DATE: 201702
